FAERS Safety Report 11922190 (Version 3)
Quarter: 2016Q3

REPORT INFORMATION
  Report Type: Report from Study
  Country: JP (occurrence: JP)
  Receive Date: 20160115
  Receipt Date: 20160915
  Transmission Date: 20161109
  Serious: Yes (Other)
  Sender: FDA-Public Use
  Company Number: JP-GLAXOSMITHKLINE-JP2016JPN001807

PATIENT
  Age: 26 Year
  Sex: Female
  Weight: 44.5 kg

DRUGS (2)
  1. BELIMUMAB [Suspect]
     Active Substance: BELIMUMAB
     Indication: SYSTEMIC LUPUS ERYTHEMATOSUS
     Dosage: 10 MG/KG,  1 HOUR EVERY 28 DAYS
     Route: 042
     Dates: start: 20121102
  2. PREDNISOLONE. [Concomitant]
     Active Substance: PREDNISOLONE
     Indication: SYSTEMIC LUPUS ERYTHEMATOSUS
     Dosage: 5 MG, QD
     Route: 048
     Dates: start: 20101129

REACTIONS (1)
  - Diabetes insipidus [Recovered/Resolved with Sequelae]

NARRATIVE: CASE EVENT DATE: 20151207
